FAERS Safety Report 26175278 (Version 1)
Quarter: 2025Q4

REPORT INFORMATION
  Report Type: Spontaneous
  Country: US (occurrence: None)
  Receive Date: 20251218
  Receipt Date: 20251218
  Transmission Date: 20260117
  Serious: Yes (Hospitalization)
  Sender: FDA-CTU
  Company Number: None

PATIENT
  Age: 85 Year
  Sex: Male

DRUGS (1)
  1. VYNDAMAX [Suspect]
     Active Substance: TAFAMIDIS
     Indication: Acute left ventricular failure
     Dosage: FREQUENCY : DAILY;
     Route: 048
     Dates: start: 20250604

REACTIONS (3)
  - Tremor [None]
  - Dialysis [None]
  - Dyspnoea exertional [None]

NARRATIVE: CASE EVENT DATE: 20251212
